FAERS Safety Report 6314092-6 (Version None)
Quarter: 2009Q3

REPORT INFORMATION
  Report Type: 
  Country: None (occurrence: None)
  Receive Date: 20090818
  Receipt Date: 20090810
  Transmission Date: 20100115
  Serious: Yes (Death, Hospitalization)
  Sender: FDA-Public Use
  Company Number: US-MERCK-0908USA01638

PATIENT
  Age: 77 Year
  Sex: Male

DRUGS (13)
  1. DECADRON [Suspect]
     Indication: MULTIPLE MYELOMA
     Route: 065
     Dates: start: 20070605
  2. DECADRON [Suspect]
     Route: 065
     Dates: start: 20070828, end: 20071001
  3. REVLIMID [Suspect]
     Indication: MULTIPLE MYELOMA
     Route: 048
     Dates: start: 20070605, end: 20070608
  4. REVLIMID [Suspect]
     Route: 048
     Dates: start: 20070610, end: 20070625
  5. REVLIMID [Suspect]
     Route: 048
     Dates: start: 20070626, end: 20070828
  6. DOXIL [Suspect]
     Indication: MULTIPLE MYELOMA
     Route: 065
     Dates: start: 20070828, end: 20071001
  7. VELCADE [Suspect]
     Indication: MULTIPLE MYELOMA
     Route: 065
     Dates: start: 20070828, end: 20071001
  8. WARFARIN [Concomitant]
     Route: 065
  9. LOVASTATIN [Concomitant]
     Route: 065
  10. DIGOXIN [Concomitant]
     Route: 065
  11. METOPROLOL [Concomitant]
     Route: 065
  12. OMEPRAZOLE [Concomitant]
     Route: 065
  13. ASPIRIN [Concomitant]
     Route: 065

REACTIONS (7)
  - ANAEMIA [None]
  - ASTHENIA [None]
  - DISEASE PROGRESSION [None]
  - DYSPNOEA EXERTIONAL [None]
  - HYPOPHAGIA [None]
  - HYPOTENSION [None]
  - NO THERAPEUTIC RESPONSE [None]
